FAERS Safety Report 9834345 (Version 1)
Quarter: 2014Q1

REPORT INFORMATION
  Report Type: Spontaneous
  Country: IT (occurrence: IT)
  Receive Date: 20140122
  Receipt Date: 20140122
  Transmission Date: 20141002
  Serious: Yes (Hospitalization)
  Sender: FDA-Public Use
  Company Number: IT-BAYER-2014-010077

PATIENT
  Age: 67 Year
  Sex: Male

DRUGS (3)
  1. CARDIOASPIRIN [Suspect]
     Dosage: DAILY DOSE 100 MG
     Route: 048
     Dates: start: 20110101, end: 20130920
  2. ENAPREN [Concomitant]
  3. LOBIVON [Concomitant]

REACTIONS (3)
  - Melaena [Unknown]
  - Rectal haemorrhage [Unknown]
  - Syncope [Unknown]
